FAERS Safety Report 25619184 (Version 1)
Quarter: 2025Q3

REPORT INFORMATION
  Report Type: Spontaneous
  Country: US (occurrence: US)
  Receive Date: 20250729
  Receipt Date: 20250729
  Transmission Date: 20251020
  Serious: No
  Sender: DR REDDYS
  Company Number: US-DRL-USA-USA/2025/07/011061

PATIENT
  Sex: Female

DRUGS (2)
  1. COLCHICINE [Suspect]
     Active Substance: COLCHICINE
     Indication: Pleuritic pain
  2. COLCHICINE [Suspect]
     Active Substance: COLCHICINE
     Indication: Chest pain

REACTIONS (1)
  - Drug ineffective for unapproved indication [Unknown]
